FAERS Safety Report 16894937 (Version 1)
Quarter: 2019Q4

REPORT INFORMATION
  Report Type: Spontaneous
  Country: US (occurrence: US)
  Receive Date: 20191007
  Receipt Date: 20191007
  Transmission Date: 20200122
  Serious: No
  Sender: FDA-Public Use
  Company Number: None

PATIENT
  Age: 53 Year
  Sex: Female
  Weight: 51.75 kg

DRUGS (5)
  1. CYCLOBENZAPRINE. [Concomitant]
     Active Substance: CYCLOBENZAPRINE
  2. PREVACID [Concomitant]
     Active Substance: LANSOPRAZOLE
  3. OXYCODONE/ACETAMINOPHEN [Suspect]
     Active Substance: ACETAMINOPHEN\OXYCODONE HYDROCHLORIDE
     Indication: PAIN
     Dosage: ?          QUANTITY:1 TABLET(S);?
     Route: 048
     Dates: start: 20191004
  4. LYRICA [Concomitant]
     Active Substance: PREGABALIN
  5. MODAFINIL. [Concomitant]
     Active Substance: MODAFINIL

REACTIONS (6)
  - Speech disorder [None]
  - Malaise [None]
  - Neurotoxicity [None]
  - Product substitution issue [None]
  - Muscle twitching [None]
  - Therapy non-responder [None]

NARRATIVE: CASE EVENT DATE: 20191004
